FAERS Safety Report 6529192-5 (Version None)
Quarter: 2009Q4

REPORT INFORMATION
  Report Type: 
  Country: None (occurrence: None)
  Receive Date: 20091231
  Receipt Date: 20091223
  Transmission Date: 20100525
  Serious: Yes (Death)
  Sender: FDA-Public Use
  Company Number: 2009-04804

PATIENT
  Age: 79 Year
  Sex: Male

DRUGS (9)
  1. VELCADE [Suspect]
     Indication: MULTIPLE MYELOMA
     Dosage: 2.2 MG, INTRAVENOUS
     Route: 042
     Dates: start: 20090605, end: 20091109
  2. DELTA-CORTEF [Concomitant]
  3. DEXAMETHASONE [Concomitant]
  4. DURAGESIC-100 [Concomitant]
  5. NITRODERM [Concomitant]
  6. ALLOPURINOL [Concomitant]
  7. COAPROVEL (HYDROCHLOROTHIAZIDE, IRBESARTAN) TABLET [Concomitant]
  8. ESOMEPRAZOLE (ESOMEPRAZOLE) TABLET [Concomitant]
  9. ACYCLOVIR [Concomitant]

REACTIONS (5)
  - ACUTE ABDOMEN [None]
  - BRONCHOPNEUMONIA [None]
  - INTESTINAL INFARCTION [None]
  - JAUNDICE [None]
  - PNEUMONIA [None]
